FAERS Safety Report 19731909 (Version 1)
Quarter: 2021Q3

REPORT INFORMATION
  Report Type: Report from Study
  Country: US (occurrence: US)
  Receive Date: 20210820
  Receipt Date: 20210820
  Transmission Date: 20211014
  Serious: Yes (Hospitalization, Other)
  Sender: FDA-Public Use
  Company Number: US-MACROGENICS-2021000183

PATIENT
  Age: 66 Year
  Sex: Female
  Weight: 108.8 kg

DRUGS (4)
  1. MARGETUXIMAB. [Suspect]
     Active Substance: MARGETUXIMAB
     Indication: COLORECTAL CANCER
     Dosage: 15 MILLIGRAM/KILOGRAM
     Route: 042
     Dates: start: 20201216, end: 20201216
  2. TEBOTELIMAB. [Suspect]
     Active Substance: TEBOTELIMAB
     Dosage: 600 MILLIGRAM
     Route: 042
     Dates: start: 20210610, end: 20210610
  3. MARGETUXIMAB. [Suspect]
     Active Substance: MARGETUXIMAB
     Dosage: 15 MILLIGRAM/KILOGRAM
     Route: 042
     Dates: start: 20210610, end: 20210610
  4. TEBOTELIMAB. [Suspect]
     Active Substance: TEBOTELIMAB
     Indication: COLORECTAL CANCER
     Dosage: 600 MILLIGRAM
     Route: 042
     Dates: start: 20201216, end: 20201216

REACTIONS (2)
  - Pain [Recovered/Resolved]
  - Adrenal insufficiency [Recovering/Resolving]

NARRATIVE: CASE EVENT DATE: 20210712
